FAERS Safety Report 7587385-2 (Version None)
Quarter: 2011Q3

REPORT INFORMATION
  Report Type: 
  Country: None (occurrence: None)
  Receive Date: 20110702
  Receipt Date: 20110622
  Transmission Date: 20111222
  Serious: Yes (Hospitalization, Other)
  Sender: FDA-Public Use
  Company Number: US-ASTRAZENECA-2011SE33875

PATIENT
  Age: 73 Year
  Sex: Female

DRUGS (9)
  1. SYMBICORT [Suspect]
     Dosage: 80 2 PUFFS ONCE A DAY
     Route: 055
  2. LEVOXYL [Concomitant]
  3. ALENDRONATE SODIUM [Concomitant]
  4. SYMBICORT [Suspect]
     Dosage: 160 2 PUFFS TWO TIMES A DAY
     Route: 055
     Dates: start: 20110301
  5. CARTIA XT [Concomitant]
  6. SINGULAIR [Concomitant]
     Dosage: 1 A DAY
  7. METHOCARBAMOL [Concomitant]
     Indication: MYALGIA
  8. ATACAND [Suspect]
     Route: 048
  9. ZYRTEC [Concomitant]
     Indication: HYPERSENSITIVITY

REACTIONS (6)
  - LUNG DISORDER [None]
  - SPINAL FRACTURE [None]
  - ASTHMA [None]
  - PAIN [None]
  - HYPERTENSION [None]
  - KNEE ARTHROPLASTY [None]
